FAERS Safety Report 7820366-X (Version None)
Quarter: 2011Q4

REPORT INFORMATION
  Report Type: 
  Country: None (occurrence: None)
  Receive Date: 20111018
  Receipt Date: 20111004
  Transmission Date: 20120403
  Serious: Yes (Hospitalization)
  Sender: FDA-Public Use
  Company Number: JP-ROCHE-1002855

PATIENT
  Sex: Male

DRUGS (7)
  1. PEGASYS [Suspect]
     Route: 058
     Dates: start: 20070425, end: 20070508
  2. PEGASYS [Suspect]
     Dosage: IRREGULARITY
     Route: 058
     Dates: start: 20080611, end: 20090427
  3. PEGASYS [Suspect]
     Route: 058
     Dates: start: 20070612, end: 20070815
  4. PEGASYS [Suspect]
     Dosage: IRREGULARITY
     Route: 058
     Dates: start: 20090527, end: 20090610
  5. COPEGUS [Suspect]
     Indication: HEPATITIS C
     Route: 048
     Dates: start: 20070418, end: 20090622
  6. PEGASYS [Suspect]
     Indication: HEPATITIS C
     Route: 058
     Dates: start: 20070418, end: 20070418
  7. PEGASYS [Suspect]
     Dosage: IRREGULARITY
     Route: 058
     Dates: start: 20070829, end: 20080519

REACTIONS (2)
  - DIABETIC KETOACIDOSIS [None]
  - DIABETES MELLITUS [None]
